FAERS Safety Report 7921959-1 (Version None)
Quarter: 2011Q4

REPORT INFORMATION
  Report Type: 
  Country: None (occurrence: None)
  Receive Date: 20111117
  Receipt Date: 20111102
  Transmission Date: 20120403
  Serious: Yes (Hospitalization, Other)
  Sender: FDA-Public Use
  Company Number: US-WATSON-2011-17927

PATIENT
  Age: 44 Year
  Sex: Male

DRUGS (4)
  1. CYCLOSPORINE [Suspect]
     Indication: IMMUNOSUPPRESSION
     Dosage: 140 MG, BID
     Route: 065
  2. CYCLOSPORINE [Suspect]
     Dosage: 170 MG, BID
     Route: 065
     Dates: start: 19850701
  3. AZATHIOPRINE [Suspect]
     Indication: IMMUNOSUPPRESSION
     Dosage: 100 MG, DAILY
     Route: 065
  4. PREDNISONE [Suspect]
     Indication: IMMUNOSUPPRESSION
     Dosage: 10 MG, TID
     Route: 065

REACTIONS (3)
  - TESTICULAR ABSCESS [None]
  - EYE INFECTION BACTERIAL [None]
  - NOCARDIOSIS [None]
